FAERS Safety Report 20970064 (Version 3)
Quarter: 2022Q3

REPORT INFORMATION
  Report Type: Spontaneous
  Country: US (occurrence: US)
  Receive Date: 20220616
  Receipt Date: 20220730
  Transmission Date: 20221026
  Serious: No
  Sender: FDA-Public Use
  Company Number: US-SA-SAC20220603000532

PATIENT
  Age: 21 Year
  Sex: Female

DRUGS (3)
  1. DUPIXENT [Suspect]
     Active Substance: DUPILUMAB
     Dosage: 600 MG, FREQUENCY : OTHER
     Route: 058
     Dates: start: 20220422, end: 20220422
  2. DUPIXENT [Suspect]
     Active Substance: DUPILUMAB
     Dosage: 300 MG  OTHER
     Route: 058
     Dates: start: 2022
  3. DUPIXENT [Suspect]
     Active Substance: DUPILUMAB
     Dosage: 300 MG, QOW
     Route: 058

REACTIONS (6)
  - Nausea [Unknown]
  - Tenderness [Unknown]
  - Injection site bruising [Unknown]
  - Rash macular [Unknown]
  - Pruritus [Unknown]
  - Device dispensing error [Unknown]

NARRATIVE: CASE EVENT DATE: 20220101
